FAERS Safety Report 19972091 (Version 1)
Quarter: 2021Q4

REPORT INFORMATION
  Report Type: Spontaneous
  Country: US (occurrence: US)
  Receive Date: 20211018
  Receipt Date: 20211018
  Transmission Date: 20220303
  Serious: Yes (Hospitalization)
  Sender: FDA-Public Use
  Company Number: None

PATIENT

DRUGS (2)
  1. KETAMINE [Suspect]
     Active Substance: KETAMINE
     Route: 040
     Dates: start: 20211014
  2. PROPOFOL [Concomitant]
     Active Substance: PROPOFOL
     Dates: start: 20211014

REACTIONS (2)
  - Hypoxia [None]
  - Pulmonary oedema [None]

NARRATIVE: CASE EVENT DATE: 20211014
